FAERS Safety Report 7423064-X (Version None)
Quarter: 2011Q2

REPORT INFORMATION
  Report Type: 
  Country: None (occurrence: None)
  Receive Date: 20110419
  Receipt Date: 20110415
  Transmission Date: 20111010
  Serious: Yes (Life-Threatening, Hospitalization)
  Sender: FDA-Public Use
  Company Number: CN-NOVOPROD-326732

PATIENT
  Age: 55 Year
  Sex: Female

DRUGS (1)
  1. NOVOLIN R [Suspect]
     Indication: PRODUCT USED FOR UNKNOWN INDICATION
     Dosage: UNK IU, UNK
     Route: 058

REACTIONS (3)
  - PRURITUS GENERALISED [None]
  - DYSPNOEA [None]
  - CONFUSIONAL STATE [None]
